FAERS Safety Report 5463251-3 (Version None)
Quarter: 2007Q3

REPORT INFORMATION
  Report Type: 
  Country: None (occurrence: None)
  Receive Date: 20070917
  Receipt Date: 20070917
  Transmission Date: 20080115
  Serious: Yes (Other)
  Sender: FDA-Public Use
  Company Number: None

PATIENT
  Age: 75 Year
  Sex: Female
  Weight: 61.2356 kg

DRUGS (1)
  1. ALDARA [Suspect]
     Indication: SKIN DISORDER
     Dosage: TOPICALLY APPLIED 5 DAYS A WK, FOR 6 WKS 060
     Dates: start: 20070102

REACTIONS (4)
  - IMPAIRED HEALING [None]
  - RASH GENERALISED [None]
  - SKIN ULCER [None]
  - SWELLING [None]
